FAERS Safety Report 9197404 (Version 3)
Quarter: 2013Q2

REPORT INFORMATION
  Report Type: Spontaneous
  Country: DK (occurrence: IT)
  Receive Date: 20130328
  Receipt Date: 20130521
  Transmission Date: 20140414
  Serious: Yes (Hospitalization)
  Sender: FDA-Public Use
  Company Number: IT-FRI-1000043791

PATIENT
  Age: 44 Year
  Sex: Female

DRUGS (6)
  1. CITALOPRAM [Suspect]
     Route: 048
     Dates: start: 20130310, end: 20130310
  2. AMARYL [Suspect]
     Route: 048
     Dates: start: 20130310, end: 20130310
  3. HUMULIN [Suspect]
     Route: 030
     Dates: start: 20130310, end: 20130310
  4. EN [Suspect]
     Route: 048
     Dates: start: 20130310, end: 20130310
  5. MINIAS [Suspect]
     Dosage: 2.5 MG/ML
     Route: 048
     Dates: start: 20130310, end: 20130310
  6. METFORMIN HYDROCHLORIDE [Suspect]
     Route: 048
     Dates: start: 20130310, end: 20130310

REACTIONS (2)
  - Toxicity to various agents [Recovering/Resolving]
  - Drug abuse [Unknown]
